FAERS Safety Report 8608546-7 (Version None)
Quarter: 2012Q3

REPORT INFORMATION
  Report Type: 
  Country: None (occurrence: None)
  Receive Date: 20120809
  Receipt Date: 20120809
  Transmission Date: 20120928
  Serious: Yes (Death, Life-Threatening, Hospitalization, Disabling)
  Sender: FDA-Public Use
  Company Number: None

PATIENT
  Age: 50 Year
  Sex: Female
  Weight: 81.6475 kg

DRUGS (2)
  1. PROPYLTHIOURACIL [Suspect]
     Indication: HYPERTHYROIDISM
     Dosage: 50 MG PER TABLET 3 TIMES A DAY PO
     Route: 048
     Dates: start: 20100701, end: 20120305
  2. FORTEO [Suspect]
     Indication: OSTEOPOROSIS
     Dosage: 20 MCG PER SHOT IN BELLY ONCE A DAY SQ
     Route: 058
     Dates: start: 20100701, end: 20120305

REACTIONS (6)
  - CONTUSION [None]
  - OROPHARYNGEAL PAIN [None]
  - NASOPHARYNGITIS [None]
  - CAPILLARY DISORDER [None]
  - PULMONARY HAEMORRHAGE [None]
  - DYSPHONIA [None]
